FAERS Safety Report 13688755 (Version 1)
Quarter: 2017Q2

REPORT INFORMATION
  Report Type: Spontaneous
  Country: US (occurrence: US)
  Receive Date: 20170623
  Receipt Date: 20170623
  Transmission Date: 20170830
  Serious: Yes (Life-Threatening, Hospitalization, Other)
  Sender: FDA-Public Use
  Company Number: None

PATIENT
  Age: 63 Year
  Sex: Female
  Weight: 62.1 kg

DRUGS (7)
  1. LEXAPRO [Concomitant]
     Active Substance: ESCITALOPRAM OXALATE
  2. XANAX [Suspect]
     Active Substance: ALPRAZOLAM
     Indication: ANXIETY
     Dosage: ?          QUANTITY:135 TABLET(S);?
     Route: 048
     Dates: start: 20000315, end: 20160610
  3. XANAX [Suspect]
     Active Substance: ALPRAZOLAM
     Indication: DEPRESSION
     Dosage: ?          QUANTITY:135 TABLET(S);?
     Route: 048
     Dates: start: 20000315, end: 20160610
  4. MELATONIN [Concomitant]
     Active Substance: MELATONIN
  5. XANAX [Suspect]
     Active Substance: ALPRAZOLAM
     Indication: ANGER
     Dosage: ?          QUANTITY:135 TABLET(S);?
     Route: 048
     Dates: start: 20000315, end: 20160610
  6. PARAGON FORTE [Concomitant]
  7. LIMBITROL [Suspect]
     Active Substance: AMITRIPTYLINE\CHLORDIAZEPOXIDE
     Indication: NEURALGIA
     Dosage: ?          QUANTITY:3 TABLET(S);?
     Route: 048
     Dates: start: 19960901, end: 20160610

REACTIONS (27)
  - Suicide attempt [None]
  - Glossodynia [None]
  - Dysgeusia [None]
  - Hyperchlorhydria [None]
  - Insomnia [None]
  - Gait disturbance [None]
  - Quality of life decreased [None]
  - Paraesthesia [None]
  - Palpitations [None]
  - Visual field defect [None]
  - Panic disorder [None]
  - Abnormal behaviour [None]
  - Anger [None]
  - Withdrawal syndrome [None]
  - Tinnitus [None]
  - Salivary hypersecretion [None]
  - Fear [None]
  - Family stress [None]
  - Burning sensation [None]
  - Laceration [None]
  - Seizure [None]
  - Alopecia [None]
  - Toothache [None]
  - Gingival pain [None]
  - Oral pain [None]
  - Weight decreased [None]
  - Skin burning sensation [None]

NARRATIVE: CASE EVENT DATE: 20150615
